FAERS Safety Report 4667543-7 (Version None)
Quarter: 2005Q2

REPORT INFORMATION
  Report Type: 
  Country: None (occurrence: None)
  Receive Date: 20050428
  Receipt Date: 20050114
  Transmission Date: 20051028
  Serious: Yes (Hospitalization)
  Sender: FDA-Public Use
  Company Number: 2004069634

PATIENT
  Age: 67 Year
  Sex: Female

DRUGS (2)
  1. ZITHROMAX [Suspect]
     Indication: ILL-DEFINED DISORDER
  2. CORTICOSTEROIDS (CORTICOSTEROIDS) [Suspect]
     Indication: ILL-DEFINED DISORDER

REACTIONS (2)
  - ABDOMINAL PAIN [None]
  - GASTRITIS [None]
